FAERS Safety Report 9531333 (Version 1)
Quarter: 2013Q3

REPORT INFORMATION
  Report Type: Spontaneous
  Country: US (occurrence: None)
  Receive Date: 20130916
  Receipt Date: 20130916
  Transmission Date: 20140515
  Serious: Yes (Disabling)
  Sender: FDA-Public Use
  Company Number: None

PATIENT
  Age: 81 Year
  Sex: Female
  Weight: 50.35 kg

DRUGS (2)
  1. ELIQUIS [Suspect]
     Indication: ANTICOAGULANT THERAPY
     Dosage: 1 PILL TWICE DAILY TAKEN BY MOUTH
     Route: 048
     Dates: start: 20130315, end: 20130902
  2. ELIQUIS [Suspect]
     Indication: ATRIAL FIBRILLATION
     Dosage: 1 PILL TWICE DAILY TAKEN BY MOUTH
     Route: 048
     Dates: start: 20130315, end: 20130902

REACTIONS (3)
  - Asthenia [None]
  - Discomfort [None]
  - Pain [None]
